FAERS Safety Report 23963455 (Version 1)
Quarter: 2024Q2

REPORT INFORMATION
  Report Type: Spontaneous
  Country: US (occurrence: None)
  Receive Date: 20240610
  Receipt Date: 20240610
  Transmission Date: 20240716
  Serious: Yes (Hospitalization)
  Sender: FDA-Public Use
  Company Number: None

PATIENT
  Age: 76 Year
  Sex: Female

DRUGS (8)
  1. PRALUENT [Suspect]
     Active Substance: ALIROCUMAB
     Indication: Hyperlipidaemia
     Dosage: 75 MG EVERY 2 WEEKS SUBCUTANEOUS?
     Route: 058
     Dates: start: 20221201
  2. ALBUTEROL HFA INH (200 PUFFS) 6.7GM [Concomitant]
  3. DILTIAZEM 120MG TABLETS [Concomitant]
  4. ELIQUIS [Concomitant]
     Active Substance: APIXABAN
  5. FLECAINIDE 100MG TABLETS [Concomitant]
  6. LASIX 80MG TABLETS [Concomitant]
  7. PRASUGREL [Concomitant]
     Active Substance: PRASUGREL
  8. PREDNISONE 2.5MG TABLETS [Concomitant]

REACTIONS (2)
  - Thrombosis [None]
  - Post procedural complication [None]

NARRATIVE: CASE EVENT DATE: 20240424
